FAERS Safety Report 13509279 (Version 2)
Quarter: 2017Q2

REPORT INFORMATION
  Report Type: Spontaneous
  Country: US (occurrence: US)
  Receive Date: 20170503
  Receipt Date: 20170615
  Transmission Date: 20170830
  Serious: Yes (Hospitalization)
  Sender: FDA-Public Use
  Company Number: US-PFIZER INC-2017186174

PATIENT
  Age: 71 Year
  Sex: Female

DRUGS (3)
  1. LETROZOLE. [Concomitant]
     Active Substance: LETROZOLE
     Dosage: UNK
     Dates: start: 2014
  2. IBRANCE [Suspect]
     Active Substance: PALBOCICLIB
     Indication: NEOPLASM MALIGNANT
     Dosage: 125 MG, DAILY
     Route: 048
     Dates: start: 20161116
  3. VITAMIN D /00107901/ [Concomitant]
     Active Substance: ERGOCALCIFEROL

REACTIONS (2)
  - Ascites [Unknown]
  - Pleural effusion [Unknown]
